FAERS Safety Report 7101705-4 (Version None)
Quarter: 2010Q4

REPORT INFORMATION
  Report Type: 
  Country: None (occurrence: None)
  Receive Date: 20101108
  Receipt Date: 20101025
  Transmission Date: 20110411
  Serious: Yes (Death, Congenital Anomaly, Other)
  Sender: FDA-Public Use
  Company Number: 1000015053

PATIENT
  Sex: Female
  Weight: 2.1 kg

DRUGS (2)
  1. ESCITALOPRAM [Suspect]
     Dosage: 20 MG (20 MG,1 IN 1 D),TRANSPLACENTAL
     Route: 064
  2. SERTRALINE HYDROCHLORIDE [Suspect]
     Dosage: 100 MG (100 MG,1 IN 1 D),TRANSPLACENTAL
     Route: 064

REACTIONS (6)
  - BREECH PRESENTATION [None]
  - HYPOXIC-ISCHAEMIC ENCEPHALOPATHY [None]
  - INTRA-UTERINE DEATH [None]
  - MATERNAL DRUGS AFFECTING FOETUS [None]
  - THROMBOSIS [None]
  - UMBILICAL CORD ABNORMALITY [None]
